FAERS Safety Report 20694865 (Version 6)
Quarter: 2022Q3

REPORT INFORMATION
  Report Type: Spontaneous
  Country: BR (occurrence: BR)
  Receive Date: 20220411
  Receipt Date: 20220713
  Transmission Date: 20221026
  Serious: Yes (Life-Threatening, Other)
  Sender: FDA-Public Use
  Company Number: BR-NOVARTISPH-NVSC2022BR081093

PATIENT
  Age: 65 Year
  Sex: Male

DRUGS (5)
  1. TEGRETOL [Suspect]
     Active Substance: CARBAMAZEPINE
     Indication: Product used for unknown indication
     Dosage: 400 MG (USE FOR MORE THAN 15 YEARS AND DISCONTINUED USE)
     Route: 065
  2. TEGRETOL [Suspect]
     Active Substance: CARBAMAZEPINE
     Dosage: 200 MG
     Route: 065
  3. TEGRETOL [Suspect]
     Active Substance: CARBAMAZEPINE
     Dosage: 400 MG (STARTED MORE THAT 30 YEARS)
     Route: 065
  4. TEGRETOL [Suspect]
     Active Substance: CARBAMAZEPINE
     Dosage: 400 MG
     Route: 065
  5. TEGRETOL XR [Suspect]
     Active Substance: CARBAMAZEPINE
     Indication: Product used for unknown indication
     Dosage: UNK
     Route: 065

REACTIONS (14)
  - Feeling abnormal [Unknown]
  - Skull fracture [Unknown]
  - Epilepsy [Unknown]
  - Malaise [Recovered/Resolved with Sequelae]
  - Micturition disorder [Recovered/Resolved]
  - Decreased appetite [Recovered/Resolved]
  - Fall [Recovered/Resolved with Sequelae]
  - Headache [Not Recovered/Not Resolved]
  - Mental disorder [Unknown]
  - Dysstasia [Unknown]
  - Scar [Unknown]
  - Illness [Unknown]
  - Product availability issue [Unknown]
  - Product use issue [Not Recovered/Not Resolved]
